FAERS Safety Report 5619655-9 (Version None)
Quarter: 2008Q1

REPORT INFORMATION
  Report Type: 
  Country: None (occurrence: None)
  Receive Date: 20080208
  Receipt Date: 20080130
  Transmission Date: 20080703
  Serious: Yes (Hospitalization, Disabling)
  Sender: FDA-Public Use
  Company Number: DE-JNJFOC-20070902813

PATIENT
  Age: 71 Year
  Sex: Male

DRUGS (11)
  1. INFLIXIMAB [Suspect]
     Indication: RHEUMATOID ARTHRITIS
     Route: 042
  2. LANTAREL [Suspect]
  3. LANTAREL [Suspect]
     Indication: RHEUMATOID ARTHRITIS
  4. DECORTIN [Concomitant]
  5. L-THYROXINE [Concomitant]
  6. ENALAPRIL MALEATE [Concomitant]
  7. VITAMIN D [Concomitant]
  8. CALCIUM GLUCONATE [Concomitant]
  9. BRONCHOSPRAY [Concomitant]
  10. VOLTAREN [Concomitant]
  11. OMNIC [Concomitant]

REACTIONS (2)
  - ACUTE VESTIBULAR SYNDROME [None]
  - RENAL CELL CARCINOMA STAGE I [None]
